FAERS Safety Report 8093273-8 (Version None)
Quarter: 2012Q1

REPORT INFORMATION
  Report Type: 
  Country: None (occurrence: None)
  Receive Date: 20120128
  Receipt Date: 20111004
  Transmission Date: 20120608
  Serious: No
  Sender: FDA-Public Use
  Company Number: US-ABBOTT-11P-163-0730621-00

PATIENT
  Age: 52 Year
  Sex: Female

DRUGS (4)
  1. HUMIRA [Suspect]
     Indication: RHEUMATOID ARTHRITIS
     Dates: start: 20110501, end: 20110918
  2. FOLIC ACID [Concomitant]
     Indication: VITAMIN SUPPLEMENTATION
     Dosage: DAILY
  3. METHOTREXATE [Concomitant]
     Indication: RHEUMATOID ARTHRITIS
     Dosage: 6 TABLETS WEEKLY
  4. LEUCOVORIN CALCIUM [Concomitant]
     Indication: RHEUMATOID ARTHRITIS
     Dosage: SAME DAY AS METHOTREXATE

REACTIONS (9)
  - FATIGUE [None]
  - BIOPSY SKIN [None]
  - FUNGAL SKIN INFECTION [None]
  - HEADACHE [None]
  - DERMATITIS ALLERGIC [None]
  - VISION BLURRED [None]
  - HEAT RASH [None]
  - RASH [None]
  - RASH PRURITIC [None]
